FAERS Safety Report 15061899 (Version 3)
Quarter: 2020Q1

REPORT INFORMATION
  Report Type: Spontaneous
  Country: DE (occurrence: DE)
  Receive Date: 20180625
  Receipt Date: 20200108
  Transmission Date: 20200409
  Serious: Yes (Hospitalization, Other)
  Sender: FDA-Public Use
  Company Number: DE-MYLANLABS-2018M1043695

PATIENT
  Age: 67 Year
  Sex: Female

DRUGS (11)
  1. ESTRADIOL. [Suspect]
     Active Substance: ESTRADIOL
     Indication: MENOPAUSAL SYMPTOMS
     Dosage: UNK
     Route: 062
  2. ESTRADIOL. [Suspect]
     Active Substance: ESTRADIOL
     Indication: HORMONE REPLACEMENT THERAPY
     Dosage: 1 TO 2 PUFFS ONCE DAILY (1 IN 1 D)
     Route: 062
     Dates: start: 200701, end: 20171229
  3. ESTRADIOL. [Suspect]
     Active Substance: ESTRADIOL
     Dosage: UNK
     Route: 065
  4. PROGESTERONE. [Suspect]
     Active Substance: PROGESTERONE
     Indication: MENOPAUSAL SYMPTOMS
     Dosage: 1 CAPSULE ONCE DAILY (1 IN 1 D)
     Route: 048
     Dates: start: 200701, end: 20171229
  5. BISOPROLOL [Concomitant]
     Active Substance: BISOPROLOL
     Indication: HYPERTENSION
     Dosage: 1 DF, 1, 1, DAY (1 IN 1 D)
     Route: 048
  6. HARVONI [Concomitant]
     Active Substance: LEDIPASVIR\SOFOSBUVIR
     Indication: CHRONIC HEPATITIS C
     Dosage: UNK
     Route: 065
     Dates: start: 201808, end: 201811
  7. PROGESTERONE. [Suspect]
     Active Substance: PROGESTERONE
     Indication: PREVENTION OF ENDOMETRIAL HYPERPLASIA
     Dosage: UNK
  8. PROGESTERONE. [Suspect]
     Active Substance: PROGESTERONE
     Dosage: 1 CAP ONCE DAILY/ 100 MG DAILY. (UNK, 1 IN 1 D)
     Route: 048
     Dates: start: 200701, end: 20171229
  9. PROGESTERONE. [Suspect]
     Active Substance: PROGESTERONE
     Dosage: 1 CAP ONCE DAILY/ 100 MG DAILY. (UNK, 1 IN 1 D)
     Route: 065
     Dates: start: 200701, end: 20171229
  10. LEGALON [Concomitant]
     Active Substance: DIETARY SUPPLEMENT\HERBALS\MILK THISTLE
     Indication: CHRONIC HEPATITIS C
     Dosage: UNK
     Route: 065
  11. BISOPROLOL [Concomitant]
     Active Substance: BISOPROLOL
     Dosage: UNK

REACTIONS (8)
  - Contraindicated product administered [Unknown]
  - Gait disturbance [Not Recovered/Not Resolved]
  - Urinary incontinence [Not Recovered/Not Resolved]
  - Endometrial thickening [Recovered/Resolved]
  - Hepatocellular carcinoma [Recovered/Resolved with Sequelae]
  - Memory impairment [Not Recovered/Not Resolved]
  - Disturbance in attention [Not Recovered/Not Resolved]
  - Muscular weakness [Not Recovered/Not Resolved]

NARRATIVE: CASE EVENT DATE: 2007
